FAERS Safety Report 19226328 (Version 1)
Quarter: 2021Q2

REPORT INFORMATION
  Report Type: Spontaneous
  Country: US (occurrence: US)
  Receive Date: 20210505
  Receipt Date: 20210505
  Transmission Date: 20210717
  Serious: No
  Sender: FDA-Public Use
  Company Number: US-ROCHE-2282955

PATIENT
  Sex: Male

DRUGS (11)
  1. METFORMIN HYDROCHLORIDE. [Concomitant]
     Active Substance: METFORMIN HYDROCHLORIDE
  2. ESBRIET [Suspect]
     Active Substance: PIRFENIDONE
     Indication: IDIOPATHIC PULMONARY FIBROSIS
     Dosage: WITH MEAL ?LAST DOSE TAKEN WAS ON 03/JAN/2021
     Route: 048
  3. ESBRIET [Suspect]
     Active Substance: PIRFENIDONE
     Indication: IDIOPATHIC PULMONARY FIBROSIS
     Route: 065
  4. GUAIFENESIN + CODEINE [Concomitant]
  5. LIPITOR [Concomitant]
     Active Substance: ATORVASTATIN CALCIUM
  6. NEXIUM [Concomitant]
     Active Substance: ESOMEPRAZOLE MAGNESIUM
  7. TRULICITY [Concomitant]
     Active Substance: DULAGLUTIDE
  8. MELOXICAM. [Concomitant]
     Active Substance: MELOXICAM
  9. ASPIRIN. [Concomitant]
     Active Substance: ASPIRIN
     Dosage: 81
  10. PRIMIDONE. [Concomitant]
     Active Substance: PRIMIDONE
  11. BENZONATATE. [Concomitant]
     Active Substance: BENZONATATE

REACTIONS (2)
  - Illness [Unknown]
  - Frequent bowel movements [Unknown]
